FAERS Safety Report 12261473 (Version 1)
Quarter: 2016Q2

REPORT INFORMATION
  Report Type: Spontaneous
  Country: GB (occurrence: GB)
  Receive Date: 20160413
  Receipt Date: 20160413
  Transmission Date: 20160815
  Serious: Yes (Hospitalization)
  Sender: FDA-Public Use
  Company Number: GB-AUROBINDO-AUR-APL-2016-04391

PATIENT
  Age: 46 Year
  Sex: Male

DRUGS (3)
  1. ADOPORT [Concomitant]
     Active Substance: TACROLIMUS
     Indication: IMMUNOSUPPRESSION
     Dosage: 50
     Route: 065
  2. VALGANCICLOVIR FILM-COATED TABLETS 450 MG [Suspect]
     Active Substance: VALGANCICLOVIR
     Indication: IMMUNOSUPPRESSION
     Dosage: 450 MG, UNK
     Route: 048
  3. COTRIMOXAZOLE [Concomitant]
     Active Substance: SULFAMETHOXAZOLE\TRIMETHOPRIM
     Indication: IMMUNOSUPPRESSION
     Dosage: 80/400 MG
     Route: 048

REACTIONS (1)
  - Complications of transplant surgery [Unknown]
